FAERS Safety Report 17712390 (Version 1)
Quarter: 2020Q2

REPORT INFORMATION
  Report Type: Spontaneous
  Country: FR (occurrence: FR)
  Receive Date: 20200427
  Receipt Date: 20200427
  Transmission Date: 20200714
  Serious: Yes (Hospitalization)
  Sender: FDA-Public Use
  Company Number: FR-TEVA-2020-FR-1226832

PATIENT
  Age: 49 Year
  Sex: Female

DRUGS (2)
  1. KETOPROFENE [Suspect]
     Active Substance: KETOPROFEN
     Indication: INFLUENZA LIKE ILLNESS
     Route: 048
     Dates: start: 20200309, end: 20200314
  2. PRETERAX [Concomitant]
     Active Substance: INDAPAMIDE\PERINDOPRIL

REACTIONS (1)
  - Condition aggravated [Recovered/Resolved]

NARRATIVE: CASE EVENT DATE: 20200313
